FAERS Safety Report 6161777-0 (Version None)
Quarter: 2009Q2

REPORT INFORMATION
  Report Type: 
  Country: None (occurrence: None)
  Receive Date: 20090421
  Receipt Date: 20090406
  Transmission Date: 20091009
  Serious: Yes (Other)
  Sender: FDA-Public Use
  Company Number: KR-ROCHE-626269

PATIENT
  Age: 65 Year
  Sex: Female

DRUGS (2)
  1. ISOTRETINOIN [Suspect]
     Dosage: FOR 5 WEEKS PRIOR TO I-131 THERAPY
     Route: 065
  2. LEVOTHYROXINE SODIUM [Concomitant]
     Dosage: DISCONTINUED FOR THE DURATION OF RA TREATMENT.

REACTIONS (2)
  - MALIGNANT NEOPLASM PROGRESSION [None]
  - THYROID CANCER [None]
